FAERS Safety Report 6115754-6 (Version None)
Quarter: 2009Q1

REPORT INFORMATION
  Report Type: 
  Country: None (occurrence: None)
  Receive Date: 20090313
  Receipt Date: 20081214
  Transmission Date: 20090719
  Serious: No
  Sender: FDA-Public Use
  Company Number: US-ABBOTT-08P-163-0493063-00

PATIENT
  Sex: Female

DRUGS (4)
  1. HUMIRA [Suspect]
     Indication: CROHN'S DISEASE
     Route: 058
     Dates: start: 20081102
  2. LISINOPRIL [Concomitant]
     Indication: HYPERTENSION
     Route: 048
  3. ESTROGENIC SUBSTANCE [Concomitant]
     Indication: HOT FLUSH
  4. PROGESTERONE [Concomitant]
     Indication: HOT FLUSH

REACTIONS (1)
  - INCORRECT DOSE ADMINISTERED [None]
